FAERS Safety Report 12022519 (Version 1)
Quarter: 2016Q1

REPORT INFORMATION
  Report Type: Report from Study
  Country: US (occurrence: US)
  Receive Date: 20160206
  Receipt Date: 20160206
  Transmission Date: 20160526
  Serious: No
  Sender: FDA-Public Use
  Company Number: US-ABBVIE-15K-163-1472378-00

PATIENT
  Age: 57 Year
  Sex: Female
  Weight: 110.78 kg

DRUGS (3)
  1. VITAMIN B12 [Concomitant]
     Active Substance: CYANOCOBALAMIN
     Indication: PRODUCT USED FOR UNKNOWN INDICATION
  2. HUMIRA [Suspect]
     Active Substance: ADALIMUMAB
     Indication: RHEUMATOID ARTHRITIS
     Route: 065
     Dates: start: 201503, end: 201509
  3. VITAMIN C [Concomitant]
     Active Substance: ASCORBIC ACID
     Indication: PRODUCT USED FOR UNKNOWN INDICATION

REACTIONS (3)
  - Skin haemorrhage [Recovering/Resolving]
  - Rash pruritic [Recovering/Resolving]
  - Rash pruritic [Recovering/Resolving]

NARRATIVE: CASE EVENT DATE: 201503
